FAERS Safety Report 12310705 (Version 4)
Quarter: 2016Q2

REPORT INFORMATION
  Report Type: Report from Study
  Country: US (occurrence: US)
  Receive Date: 20160427
  Receipt Date: 20160607
  Transmission Date: 20160815
  Serious: Yes (Other)
  Sender: FDA-Public Use
  Company Number: US-ACTELION-A-US2016-135086

PATIENT
  Age: 65 Year
  Sex: Male

DRUGS (3)
  1. NIFEDICAL XL [Concomitant]
     Active Substance: NIFEDIPINE
  2. VELETRI [Suspect]
     Active Substance: EPOPROSTENOL
     Indication: PULMONARY ARTERIAL HYPERTENSION
     Dosage: 22 NG/KG, PER MIN
     Route: 042
     Dates: start: 20120709
  3. OPSUMIT [Concomitant]
     Active Substance: MACITENTAN
     Route: 048

REACTIONS (6)
  - Muscular weakness [Unknown]
  - Injury [Unknown]
  - Headache [Unknown]
  - Dizziness [Recovered/Resolved]
  - Pain in jaw [Unknown]
  - Weight increased [Unknown]
